FAERS Safety Report 16857491 (Version 1)
Quarter: 2019Q3

REPORT INFORMATION
  Report Type: Spontaneous
  Country: US (occurrence: US)
  Receive Date: 20190926
  Receipt Date: 20190926
  Transmission Date: 20191005
  Serious: Yes (Other)
  Sender: FDA-Public Use
  Company Number: US-FRESENIUS MEDICAL CARE RENAL THERAPIES GROUP-FMC-1909-001254

PATIENT
  Sex: Male
  Weight: 90 kg

DRUGS (2)
  1. DELFLEX WITH DEXTROSE 1.5% LOW MAGNESIUM LOW CALCIUM [Suspect]
     Active Substance: CALCIUM CHLORIDE\DEXTROSE\MAGNESIUM CHLORIDE\SODIUM CHLORIDE\SODIUM LACTATE
     Indication: END STAGE RENAL DISEASE
     Dosage: 7 DAYS A WEEK; 8 HOURS; FILL VOLUME 2000 ML; 5 EXCHANGES; NO LAST FILL; NO DAYTIME EXCHANGE
     Route: 033
     Dates: start: 20180524
  2. DELFLEX WITH DEXTROSE 2.5% LOW MAGNESIUM LOW CALCIUM [Suspect]
     Active Substance: CALCIUM CHLORIDE\DEXTROSE\MAGNESIUM CHLORIDE\SODIUM CHLORIDE\SODIUM LACTATE
     Indication: END STAGE RENAL DISEASE
     Dosage: 7 DAYS A WEEK; 8 HOURS; FILL VOLUME 2000 ML; 5 EXCHANGES; NO LAST FILL; NO DAYTIME EXCHANGE
     Route: 033
     Dates: start: 20180524

REACTIONS (1)
  - Peritonitis bacterial [Recovered/Resolved]
